FAERS Safety Report 25318543 (Version 1)
Quarter: 2025Q2

REPORT INFORMATION
  Report Type: Spontaneous
  Country: US (occurrence: US)
  Receive Date: 20250515
  Receipt Date: 20250515
  Transmission Date: 20250716
  Serious: No
  Sender: STRIDES
  Company Number: US-STRIDES ARCOLAB LIMITED-2024SP014224

PATIENT
  Age: 24 Year
  Sex: Female

DRUGS (7)
  1. VANCOMYCIN [Suspect]
     Active Substance: VANCOMYCIN
     Indication: Periorbital cellulitis
     Route: 065
  2. VANCOMYCIN [Suspect]
     Active Substance: VANCOMYCIN
     Indication: Periorbital cellulitis
  3. VANCOMYCIN [Suspect]
     Active Substance: VANCOMYCIN
     Indication: Cellulitis orbital
  4. VANCOMYCIN [Suspect]
     Active Substance: VANCOMYCIN
     Indication: Periorbital abscess
  5. AMOXICILLIN\CLAVULANIC ACID [Concomitant]
     Active Substance: AMOXICILLIN\CLAVULANIC ACID
     Indication: Cellulitis orbital
     Route: 048
  6. COTRIMOXAZOLE [Concomitant]
     Active Substance: SULFAMETHOXAZOLE\TRIMETHOPRIM
     Indication: Cellulitis orbital
     Route: 065
  7. OFLOXACIN [Concomitant]
     Active Substance: OFLOXACIN
     Indication: Cellulitis orbital
     Route: 061

REACTIONS (1)
  - Off label use [Unknown]
